FAERS Safety Report 9060370 (Version 1)
Quarter: 2013Q1

REPORT INFORMATION
  Report Type: Spontaneous
  Country: ES (occurrence: ES)
  Receive Date: 20130212
  Receipt Date: 20130212
  Transmission Date: 20140127
  Serious: Yes (Other)
  Sender: FDA-Public Use
  Company Number: ES-TEVA-385824USA

PATIENT
  Age: 50 Year
  Sex: Male

DRUGS (3)
  1. BENDAMUSTINE [Suspect]
     Indication: B-CELL LYMPHOMA
  2. ACICLOVIR [Concomitant]
  3. ALLOPURINOL [Concomitant]

REACTIONS (2)
  - Malignant pleural effusion [Unknown]
  - Rash [Unknown]
